FAERS Safety Report 4268885-X (Version None)
Quarter: 2004Q1

REPORT INFORMATION
  Report Type: 
  Country: None (occurrence: None)
  Receive Date: 20040109
  Receipt Date: 20031231
  Transmission Date: 20041129
  Serious: Yes (Life-Threatening)
  Sender: FDA-Public Use
  Company Number: 2003-04613

PATIENT
  Age: 71 Year
  Sex: Male
  Weight: 79 kg

DRUGS (13)
  1. FERRLECIT [Suspect]
     Indication: IRON DEFICIENCY ANAEMIA
     Dosage: 62.5 MG SINGLE OVER 10 SINGLE OVER 10 MINUTES INTRAVENOUS
     Route: 042
     Dates: start: 20031118, end: 20031118
  2. FERRLECIT [Suspect]
     Indication: IRON DEFICIENCY ANAEMIA
     Dosage: 62.5 MG SINGLE OVER 10 SINGLE OVER 10 MINUTES INTRAVENOUS
     Route: 042
     Dates: start: 20031124, end: 20031124
  3. INSULIN, REGULAR (INSULIN) [Concomitant]
  4. NPH INSULIN [Concomitant]
  5. NEPHRO-VITE RX (VITAMIN B NOS) [Concomitant]
  6. PERSANTIN INJ [Concomitant]
  7. LASIX [Concomitant]
  8. RENAGEL [Concomitant]
  9. PRINIVIL [Concomitant]
  10. ASPIRIN [Concomitant]
  11. FERROUS SULFATE TAB [Concomitant]
  12. COUMADIN [Concomitant]
  13. EPOGEN [Concomitant]

REACTIONS (8)
  - BLOOD PRESSURE SYSTOLIC INCREASED [None]
  - COMA [None]
  - DIALYSIS [None]
  - EXTRASYSTOLES [None]
  - FLUSHING [None]
  - HYPOTENSION [None]
  - RESPIRATORY ARREST [None]
  - VOMITING [None]
